FAERS Safety Report 5767314-4 (Version None)
Quarter: 2008Q2

REPORT INFORMATION
  Report Type: 
  Country: None (occurrence: None)
  Receive Date: 20080610
  Receipt Date: 20071108
  Transmission Date: 20081010
  Serious: Yes (Hospitalization)
  Sender: FDA-Public Use
  Company Number: NUBN20070006

PATIENT
  Age: 48 Year
  Sex: Female

DRUGS (3)
  1. NUBAIN [Suspect]
     Indication: BACK PAIN
     Dates: end: 20070717
  2. PHENERGAN HCL [Suspect]
     Indication: BACK PAIN
     Dates: end: 20070717
  3. UNSPECIFIED MEDICATION [Suspect]

REACTIONS (2)
  - NEUTROPENIA [None]
  - SWELLING FACE [None]
